FAERS Safety Report 18975563 (Version 2)
Quarter: 2022Q3

REPORT INFORMATION
  Report Type: Spontaneous
  Country: US (occurrence: US)
  Receive Date: 20210306
  Receipt Date: 20220927
  Transmission Date: 20221026
  Serious: Yes (Other)
  Sender: FDA-Public Use
  Company Number: US-SA-SAC20210303000637

PATIENT
  Age: 48 Year
  Sex: Male

DRUGS (2)
  1. ZANTAC [Suspect]
     Active Substance: RANITIDINE HYDROCHLORIDE
     Indication: Hyperchlorhydria
     Dosage: 75 MG, QD
     Route: 065
     Dates: start: 200701, end: 200912
  2. ZANTAC [Suspect]
     Active Substance: RANITIDINE HYDROCHLORIDE
     Indication: Dyspepsia

REACTIONS (3)
  - Colorectal cancer stage IV [Unknown]
  - Prostate cancer stage IV [Unknown]
  - Hepatic cancer stage IV [Unknown]

NARRATIVE: CASE EVENT DATE: 20070801
